FAERS Safety Report 17289606 (Version 3)
Quarter: 2020Q3

REPORT INFORMATION
  Report Type: Report from Study
  Country: TW (occurrence: TW)
  Receive Date: 20200120
  Receipt Date: 20200720
  Transmission Date: 20201102
  Serious: Yes (Hospitalization, Other)
  Sender: FDA-Public Use
  Company Number: TW-TAKEDA-2020TUS003237

PATIENT
  Age: 26 Year
  Sex: Male

DRUGS (4)
  1. MESALAZINE [Concomitant]
     Active Substance: MESALAMINE
     Dosage: UNK
     Dates: start: 20191004, end: 20191227
  2. VEDOLIZUMAB [Suspect]
     Active Substance: VEDOLIZUMAB
     Indication: CROHN^S DISEASE
     Dosage: 300 MILLIGRAM
     Route: 042
     Dates: start: 20191204, end: 20200714
  3. TEICOPLANIN [Suspect]
     Active Substance: TEICOPLANIN
     Indication: PRODUCT USED FOR UNKNOWN INDICATION
     Dosage: UNK
     Route: 065
  4. PREDNISOLONE. [Concomitant]
     Active Substance: PREDNISOLONE
     Dosage: UNK
     Dates: start: 20191004, end: 20200519

REACTIONS (35)
  - Malnutrition [Unknown]
  - Seizure [Unknown]
  - Vessel puncture site haematoma [Unknown]
  - Melaena [Unknown]
  - Peritonitis bacterial [Unknown]
  - Haemoglobin decreased [Unknown]
  - Wound necrosis [Unknown]
  - Pleural effusion [Unknown]
  - Device related infection [Unknown]
  - Small intestinal obstruction [Unknown]
  - Abdominal adhesions [Unknown]
  - Intestinal perforation [Unknown]
  - Dehydration [Unknown]
  - Abdominal abscess [Unknown]
  - Atelectasis [Unknown]
  - Crohn^s disease [Unknown]
  - Drug reaction with eosinophilia and systemic symptoms [Unknown]
  - Diarrhoea [Unknown]
  - Sepsis [Unknown]
  - Hepatic failure [Unknown]
  - Subcutaneous haematoma [Unknown]
  - Urine output decreased [Unknown]
  - Haematemesis [Unknown]
  - Blood pressure decreased [Unknown]
  - Pulmonary oedema [Unknown]
  - Shock [Unknown]
  - Ascites [Unknown]
  - Deep vein thrombosis [Unknown]
  - Thrombocytopenia [Unknown]
  - Hypercapnia [Unknown]
  - Soft tissue infection [Unknown]
  - Epstein-Barr virus infection [Unknown]
  - Bronchiolitis [Unknown]
  - Medical device site haemorrhage [Unknown]
  - Pleural effusion [Unknown]

NARRATIVE: CASE EVENT DATE: 20191231
